FAERS Safety Report 11221426 (Version 1)
Quarter: 2015Q2

REPORT INFORMATION
  Report Type: Spontaneous
  Country: US (occurrence: US)
  Receive Date: 20150626
  Receipt Date: 20150626
  Transmission Date: 20150821
  Serious: Yes (Hospitalization)
  Sender: FDA-Public Use
  Company Number: US-DYAX CORP.-2015DX000297

PATIENT
  Age: 10 Year
  Sex: Female
  Weight: 50.1 kg

DRUGS (5)
  1. CONSTIPATION MEDICATION [Concomitant]
     Indication: CONSTIPATION
     Route: 048
  2. PATANASE [Concomitant]
     Active Substance: OLOPATADINE HYDROCHLORIDE
     Indication: SEASONAL ALLERGY
     Route: 065
  3. KALBITOR [Suspect]
     Active Substance: ECALLANTIDE
     Route: 058
     Dates: start: 2012
  4. KALBITOR [Suspect]
     Active Substance: ECALLANTIDE
     Indication: HEREDITARY ANGIOEDEMA
     Route: 058
     Dates: start: 20150302, end: 20150302
  5. KALBITOR [Suspect]
     Active Substance: ECALLANTIDE
     Route: 058
     Dates: start: 201502, end: 201502

REACTIONS (5)
  - Inguinal hernia [Recovered/Resolved]
  - Off label use [Unknown]
  - Adenoiditis [Recovered/Resolved]
  - Hereditary angioedema [Recovered/Resolved]
  - Tonsillitis [Recovered/Resolved]

NARRATIVE: CASE EVENT DATE: 201312
